FAERS Safety Report 4387925-0 (Version None)
Quarter: 2004Q2

REPORT INFORMATION
  Report Type: 
  Country: None (occurrence: None)
  Receive Date: 20040607
  Receipt Date: 20031217
  Transmission Date: 20050107
  Serious: Yes (Other)
  Sender: FDA-Public Use
  Company Number: 354346

PATIENT
  Age: 18 Year
  Sex: Male
  Weight: 25.4922 kg

DRUGS (2)
  1. ACCUTANE (ISOTRETIOIN [Suspect]
     Indication: ACNE
     Dosage: 40 MG ORAL
     Route: 048
     Dates: start: 20031010, end: 20031215
  2. . [Concomitant]
     Dosage: NA

REACTIONS (1)
  - TINNITUS [None]
